FAERS Safety Report 9866780 (Version 5)
Quarter: 2017Q4

REPORT INFORMATION
  Report Type: Report from Study
  Country: JP (occurrence: JP)
  Receive Date: 20140204
  Receipt Date: 20171012
  Transmission Date: 20180321
  Serious: Yes (Life-Threatening, Hospitalization, Other)
  Sender: FDA-Public Use
  Company Number: JP-ROCHE-1311703

PATIENT
  Age: 76 Year
  Sex: Female
  Weight: 48 kg

DRUGS (3)
  1. BEVACIZUMAB. [Suspect]
     Active Substance: BEVACIZUMAB
     Indication: BREAST CANCER
     Route: 041
     Dates: start: 20131011, end: 20131120
  2. PACLITAXEL. [Suspect]
     Active Substance: PACLITAXEL
     Indication: BREAST CANCER
     Route: 041
     Dates: start: 20131113, end: 20131120
  3. PACLITAXEL. [Suspect]
     Active Substance: PACLITAXEL
     Indication: BREAST CANCER
     Route: 041
     Dates: start: 20131011, end: 2013

REACTIONS (11)
  - Infection [Recovered/Resolved]
  - Neutrophil count decreased [Recovering/Resolving]
  - White blood cell count decreased [Recovered/Resolved]
  - Alopecia [Not Recovered/Not Resolved]
  - Interstitial lung disease [Recovered/Resolved]
  - Alanine aminotransferase increased [Recovering/Resolving]
  - Protein urine [Recovering/Resolving]
  - Diarrhoea [Recovering/Resolving]
  - Aspartate aminotransferase increased [Recovering/Resolving]
  - Pyrexia [Recovered/Resolved]
  - Hypertension [Not Recovered/Not Resolved]

NARRATIVE: CASE EVENT DATE: 20131011
